FAERS Safety Report 9055786 (Version 3)
Quarter: 2013Q2

REPORT INFORMATION
  Report Type: Report from Study
  Country: DE (occurrence: DE)
  Receive Date: 20130206
  Receipt Date: 20130422
  Transmission Date: 20140414
  Serious: Yes (Hospitalization)
  Sender: FDA-Public Use
  Company Number: DE-ABBOTT-13P-062-1045046-00

PATIENT
  Age: 65 Year
  Sex: Male
  Weight: 103 kg

DRUGS (2)
  1. HUMIRA [Suspect]
     Indication: RHEUMATOID ARTHRITIS
     Route: 058
     Dates: start: 20061228, end: 20120725
  2. HUMIRA [Suspect]
     Route: 058
     Dates: start: 20120825

REACTIONS (3)
  - Rehabilitation therapy [Unknown]
  - Erythema multiforme [Recovered/Resolved]
  - Herpes simplex DNA test positive [Unknown]
